FAERS Safety Report 9698673 (Version 1)
Quarter: 2013Q4

REPORT INFORMATION
  Report Type: Spontaneous
  Country: US (occurrence: US)
  Receive Date: 20131120
  Receipt Date: 20131120
  Transmission Date: 20140711
  Serious: No
  Sender: FDA-Public Use
  Company Number: US-TEVA-445530USA

PATIENT
  Sex: Female

DRUGS (1)
  1. COPAXONE [Suspect]
     Indication: MULTIPLE SCLEROSIS
     Dates: start: 20121221

REACTIONS (6)
  - Local swelling [Recovered/Resolved]
  - Joint swelling [Recovered/Resolved]
  - Swelling [Recovered/Resolved]
  - Abdominal distension [Not Recovered/Not Resolved]
  - Faecal volume increased [Unknown]
  - Weight increased [Not Recovered/Not Resolved]
